FAERS Safety Report 18794762 (Version 1)
Quarter: 2021Q1

REPORT INFORMATION
  Report Type: Spontaneous
  Country: US (occurrence: US)
  Receive Date: 20210127
  Receipt Date: 20210127
  Transmission Date: 20210419
  Serious: Yes (Hospitalization)
  Sender: FDA-Public Use
  Company Number: None

PATIENT
  Age: 81 Year
  Sex: Female

DRUGS (1)
  1. PROLIA [Suspect]
     Active Substance: DENOSUMAB
     Indication: COLON CANCER
     Dosage: ?          OTHER FREQUENCY:AS DIRECTED ONCE;?
     Route: 058

REACTIONS (2)
  - Depression [None]
  - Therapy interrupted [None]
